FAERS Safety Report 7721590-7 (Version None)
Quarter: 2011Q3

REPORT INFORMATION
  Report Type: 
  Country: None (occurrence: None)
  Receive Date: 20110831
  Receipt Date: 20110819
  Transmission Date: 20111222
  Serious: Yes (Other)
  Sender: FDA-Public Use
  Company Number: JP-ELI_LILLY_AND_COMPANY-JP201108005891

PATIENT
  Sex: Male

DRUGS (1)
  1. GEMZAR [Suspect]
     Dosage: UNK, OTHER
     Route: 042
     Dates: start: 20110401

REACTIONS (1)
  - GASTRIC CANCER [None]
